FAERS Safety Report 5915408-2 (Version None)
Quarter: 2008Q4

REPORT INFORMATION
  Report Type: 
  Country: None (occurrence: None)
  Receive Date: 20081010
  Receipt Date: 20081001
  Transmission Date: 20090506
  Serious: Yes (Other)
  Sender: FDA-Public Use
  Company Number: CA-ABBOTT-08P-028-0479569-00

PATIENT
  Sex: Female
  Weight: 59.02 kg

DRUGS (2)
  1. HUMIRA [Suspect]
     Indication: CROHN'S DISEASE
     Route: 058
     Dates: start: 20070503
  2. PETHIDINE HYDROCHLORIDE [Suspect]
     Indication: POSTOPERATIVE ANALGESIA

REACTIONS (9)
  - CLAVICLE FRACTURE [None]
  - COAGULOPATHY [None]
  - CONVULSION [None]
  - CYST [None]
  - DYSPNOEA [None]
  - HAEMATOMA [None]
  - HYPOTENSION [None]
  - MUSCULOSKELETAL CHEST PAIN [None]
  - UTERINE LEIOMYOMA [None]
